FAERS Safety Report 14969010 (Version 1)
Quarter: 2018Q2

REPORT INFORMATION
  Report Type: Spontaneous
  Country: US (occurrence: US)
  Receive Date: 20180604
  Receipt Date: 20180604
  Transmission Date: 20180711
  Serious: Yes (Other)
  Sender: FDA-Public Use
  Company Number: US-SA-2018SA145378

PATIENT

DRUGS (2)
  1. TAXOTERE [Suspect]
     Active Substance: DOCETAXEL
     Dosage: UNKNOWN
     Route: 065
     Dates: start: 201510, end: 201510
  2. TAXOTERE [Suspect]
     Active Substance: DOCETAXEL
     Dosage: UNKNOWN
     Route: 065
     Dates: start: 201503, end: 201503

REACTIONS (1)
  - Alopecia [Not Recovered/Not Resolved]
